FAERS Safety Report 21651167 (Version 1)
Quarter: 2022Q4

REPORT INFORMATION
  Report Type: Spontaneous
  Country: US (occurrence: None)
  Receive Date: 20221126
  Receipt Date: 20221126
  Transmission Date: 20230112
  Serious: Yes (Disabling, Other)
  Sender: FDA-Public Use
  Company Number: None

PATIENT
  Age: 30 Year
  Sex: Male
  Weight: 83.25 kg

DRUGS (1)
  1. FINASTERIDE [Suspect]
     Active Substance: FINASTERIDE
     Indication: Androgenetic alopecia

REACTIONS (5)
  - Dizziness [None]
  - Erectile dysfunction [None]
  - Genital paraesthesia [None]
  - Hypoaesthesia [None]
  - Erectile dysfunction [None]

NARRATIVE: CASE EVENT DATE: 20220518
